FAERS Safety Report 9799310 (Version 1)
Quarter: 2014Q1

REPORT INFORMATION
  Report Type: Spontaneous
  Country: FR (occurrence: FR)
  Receive Date: 20140106
  Receipt Date: 20140106
  Transmission Date: 20141002
  Serious: Yes (Life-Threatening)
  Sender: FDA-Public Use
  Company Number: FR-009507513-1401FRA000108

PATIENT
  Sex: Female

DRUGS (5)
  1. CELESTENE 8MG/2ML [Suspect]
     Indication: PREMATURE DELIVERY
     Dosage: 24 MG, QD
     Route: 042
     Dates: start: 20131117, end: 20131118
  2. TRACTOCILE [Suspect]
     Indication: PREMATURE DELIVERY
     Dosage: 144 MG (6 MG IN 1 HOUR)
     Route: 042
     Dates: start: 20131117, end: 20131118
  3. TRACTOCILE [Suspect]
     Indication: PREMATURE DELIVERY
  4. RESTORVOL [Suspect]
     Indication: HYPOVOLAEMIA
     Dosage: 1500 ML, QD
     Route: 042
     Dates: start: 20131117, end: 20131118
  5. GLUCOSE B BRAUN [Suspect]
     Indication: HYPOVOLAEMIA
     Dosage: 1000 ML, QD
     Route: 042
     Dates: start: 20131117, end: 20131118

REACTIONS (1)
  - Acute pulmonary oedema [Recovered/Resolved]
